FAERS Safety Report 17394261 (Version 3)
Quarter: 2020Q1

REPORT INFORMATION
  Report Type: Spontaneous
  Country: EG (occurrence: EG)
  Receive Date: 20200210
  Receipt Date: 20200225
  Transmission Date: 20200409
  Serious: Yes (Death, Other)
  Sender: FDA-Public Use
  Company Number: EG-HRARD-202000053

PATIENT
  Age: 158 Month
  Sex: Female

DRUGS (4)
  1. DOXORUBICIN [Concomitant]
     Active Substance: DOXORUBICIN
     Indication: ADRENOCORTICAL CARCINOMA
     Dates: start: 20090817
  2. ETOPOSIDE. [Concomitant]
     Active Substance: ETOPOSIDE
     Indication: ADRENOCORTICAL CARCINOMA
     Dates: start: 20090817
  3. MITOTANE [Suspect]
     Active Substance: MITOTANE
     Indication: ADRENOCORTICAL CARCINOMA
     Dosage: DOSE ESCALATION STARTING AT 1 GRAM PER DAY, GIVEN INTERMITTENTLY
     Route: 048
     Dates: start: 20090817
  4. PLATINOL [Concomitant]
     Active Substance: CISPLATIN
     Indication: ADRENOCORTICAL CARCINOMA
     Dates: start: 20090817

REACTIONS (5)
  - Sepsis [Fatal]
  - Bone marrow failure [Fatal]
  - Neoplasm progression [Fatal]
  - Cardiotoxicity [Fatal]
  - Lower respiratory tract infection [Fatal]

NARRATIVE: CASE EVENT DATE: 20090912
